FAERS Safety Report 15616604 (Version 2)
Quarter: 2019Q2

REPORT INFORMATION
  Report Type: Spontaneous
  Country: TR (occurrence: TR)
  Receive Date: 20181114
  Receipt Date: 20190410
  Transmission Date: 20190711
  Serious: Yes (Other)
  Sender: FDA-Public Use
  Company Number: TR-TEVA-2018-TR-975609

PATIENT
  Age: 58 Year
  Sex: Female

DRUGS (1)
  1. TETRADOX 100 MG CAPSULE [Suspect]
     Active Substance: DOXYCYCLINE
     Indication: HORDEOLUM
     Dosage: 200 MILLIGRAM DAILY;
     Route: 048
     Dates: start: 20181029, end: 20181101

REACTIONS (4)
  - Nausea [Recovered/Resolved]
  - Abdominal pain upper [Recovered/Resolved]
  - Foreign body in respiratory tract [Recovered/Resolved]
  - Dysphagia [Recovered/Resolved]

NARRATIVE: CASE EVENT DATE: 20181031
